FAERS Safety Report 5926188-9 (Version None)
Quarter: 2008Q4

REPORT INFORMATION
  Report Type: 
  Country: None (occurrence: None)
  Receive Date: 20081017
  Receipt Date: 20081010
  Transmission Date: 20090506
  Serious: Yes (Death)
  Sender: FDA-Public Use
  Company Number: 2008AL003882

PATIENT
  Age: 38 Year
  Sex: Female
  Weight: 124.7392 kg

DRUGS (7)
  1. DIGOXIN [Suspect]
     Indication: CARDIAC FAILURE
     Dosage: 0.125MG DAILY PO
     Route: 048
  2. ASTHMA MEDICATION (UNSPECIFIED) [Concomitant]
  3. COREG [Concomitant]
  4. LASIX [Concomitant]
  5. VASOTEC [Concomitant]
  6. SINGULAIR [Concomitant]
  7. ALBUTEROL [Concomitant]

REACTIONS (3)
  - ASTHENIA [None]
  - DIZZINESS [None]
  - MALAISE [None]
